FAERS Safety Report 8797303 (Version 1)
Quarter: 2012Q4

REPORT INFORMATION
  Report Type: 
  Country: FR (occurrence: FR)
  Receive Date: 20120919
  Receipt Date: 20120919
  Transmission Date: 20130627
  Serious: Yes (Other)
  Sender: FDA-Public Use
  Company Number: FR-TEVA-358602ISR

PATIENT
  Age: 24 Year
  Sex: Male

DRUGS (1)
  1. LEVETIRACETAM [Suspect]
     Route: 065

REACTIONS (1)
  - Electrocardiogram QT prolonged [Unknown]
